FAERS Safety Report 17482020 (Version 3)
Quarter: 2020Q2

REPORT INFORMATION
  Report Type: Report from Study
  Country: US (occurrence: US)
  Receive Date: 20200302
  Receipt Date: 20200612
  Transmission Date: 20200713
  Serious: Yes (Other)
  Sender: FDA-Public Use
  Company Number: NVSC2020US054740

PATIENT
  Sex: Female

DRUGS (1)
  1. ENTRESTO [Suspect]
     Active Substance: SACUBITRIL\VALSARTAN
     Indication: PRODUCT USED FOR UNKNOWN INDICATION
     Dosage: UNK UNK, UNKNOWN
     Route: 065

REACTIONS (30)
  - Diabetes mellitus [Unknown]
  - Nephrolithiasis [Unknown]
  - Blood magnesium decreased [Unknown]
  - Acute myeloid leukaemia [Unknown]
  - Diabetic neuropathy [Unknown]
  - Dyspnoea [Unknown]
  - Endocrine ophthalmopathy [Unknown]
  - Hepatic steatosis [Unknown]
  - Serum ferritin [Unknown]
  - Cardiomyopathy [Unknown]
  - Chronic kidney disease [Unknown]
  - Microalbuminuria [Unknown]
  - Hypomagnesaemia [Unknown]
  - Blood uric acid [Unknown]
  - Cardiac failure [Unknown]
  - Pneumonia [Unknown]
  - Astigmatism [Unknown]
  - Gastrooesophageal reflux disease [Unknown]
  - Hyperlipidaemia [Unknown]
  - Tobacco abuse [Unknown]
  - Vitamin D deficiency [Unknown]
  - Generalised anxiety disorder [Unknown]
  - Basedow^s disease [Unknown]
  - Major depression [Unknown]
  - Hypothyroidism [Unknown]
  - Atrial fibrillation [Unknown]
  - Hypertension [Unknown]
  - Diabetes mellitus inadequate control [Unknown]
  - Migraine [Unknown]
  - Arthralgia [Unknown]
